FAERS Safety Report 21025465 (Version 3)
Quarter: 2022Q3

REPORT INFORMATION
  Report Type: Other
  Country: JP (occurrence: JP)
  Receive Date: 20220630
  Receipt Date: 20220830
  Transmission Date: 20221026
  Serious: Yes (Hospitalization, Other)
  Sender: FDA-Public Use
  Company Number: JP-CHUGAI-2022020460

PATIENT
  Age: 74 Year
  Sex: Male
  Weight: 55.3 kg

DRUGS (3)
  1. ATEZOLIZUMAB [Suspect]
     Active Substance: ATEZOLIZUMAB
     Indication: Squamous cell carcinoma of lung
     Dosage: 1200 MILLIGRAM, SINGLE
     Route: 041
     Dates: start: 20210114
  2. ABRAXANE [Suspect]
     Active Substance: PACLITAXEL
     Indication: Squamous cell carcinoma of lung
     Dosage: ON 21/JAN/2021, HE RECEIVED MOST RECENT DOSE OF PACLITAXEL NANOPARTICLE ALBUMIN-BOUND.
     Route: 041
     Dates: start: 20210114
  3. CARBOPLATIN [Concomitant]
     Active Substance: CARBOPLATIN
     Indication: Squamous cell carcinoma of lung
     Dosage: 550 MILLIGRAM, SINGLE
     Route: 041
     Dates: start: 20210114, end: 20210114

REACTIONS (3)
  - Diabetes mellitus [Unknown]
  - Interstitial lung disease [Recovering/Resolving]
  - White blood cell count decreased [Recovering/Resolving]

NARRATIVE: CASE EVENT DATE: 20210120
